FAERS Safety Report 15300468 (Version 1)
Quarter: 2018Q3

REPORT INFORMATION
  Report Type: Spontaneous
  Country: CO (occurrence: CO)
  Receive Date: 20180821
  Receipt Date: 20180821
  Transmission Date: 20181010
  Serious: Yes (Death)
  Sender: FDA-Public Use
  Company Number: CO-BAYER-2018-154822

PATIENT
  Age: 42 Year
  Sex: Female

DRUGS (1)
  1. ADEMPAS [Suspect]
     Active Substance: RIOCIGUAT
     Indication: PULMONARY HYPERTENSION
     Dosage: UNK
     Dates: start: 20170727, end: 20180717

REACTIONS (3)
  - Generalised oedema [Fatal]
  - Respiratory distress [Fatal]
  - Intentional product use issue [None]

NARRATIVE: CASE EVENT DATE: 20180717
